FAERS Safety Report 9000750 (Version 1)
Quarter: 2013Q1

REPORT INFORMATION
  Report Type: Spontaneous
  Country: GB (occurrence: GB)
  Receive Date: 20130107
  Receipt Date: 20130107
  Transmission Date: 20140127
  Serious: Yes (Hospitalization, Other)
  Sender: FDA-Public Use
  Company Number: GB-B.I. PHARMACEUTICALS,INC./RIDGEFIELD-2013-UK-00001UK

PATIENT
  Age: 62 Year
  Sex: Male
  Weight: 132.5 kg

DRUGS (14)
  1. VIRAMUNE [Suspect]
     Dosage: 100 MG
  2. ABACAVIR [Concomitant]
  3. ASPIRIN [Concomitant]
  4. BISOPROLOL [Concomitant]
  5. DARUNAVIR [Concomitant]
  6. GLIMEPIRIDE [Concomitant]
     Dosage: 4 MG
  7. HUMULIN [Concomitant]
  8. METFORMIN [Concomitant]
  9. PANTOPRAZOLE [Concomitant]
  10. QUINNINE SULPHATE [Concomitant]
  11. RITONAVIR [Concomitant]
  12. ROSUVASTATIN [Concomitant]
  13. SITAGLIPTIN [Concomitant]
  14. TEMAZEPAM [Concomitant]

REACTIONS (1)
  - Blood glucose increased [Not Recovered/Not Resolved]
